FAERS Safety Report 9408244 (Version 3)
Quarter: 2013Q4

REPORT INFORMATION
  Report Type: Spontaneous
  Country: US (occurrence: US)
  Receive Date: 20130718
  Receipt Date: 20131030
  Transmission Date: 20140711
  Serious: Yes (Hospitalization)
  Sender: FDA-Public Use
  Company Number: US-GLAXOSMITHKLINE-A1001515A

PATIENT
  Age: 47 Year
  Sex: Male
  Weight: 130.9 kg

DRUGS (1)
  1. AVANDIA [Suspect]
     Indication: DIABETES MELLITUS
     Dosage: 8MG PER DAY
     Route: 048
     Dates: start: 1999, end: 2005

REACTIONS (4)
  - Myocardial infarction [Recovering/Resolving]
  - Stent placement [Unknown]
  - Coronary artery bypass [Unknown]
  - Myocardial infarction [Unknown]
